FAERS Safety Report 4829210-6 (Version None)
Quarter: 2005Q4

REPORT INFORMATION
  Report Type: 
  Country: None (occurrence: None)
  Receive Date: 20051028
  Receipt Date: 20050811
  Transmission Date: 20060501
  Serious: Yes (Hospitalization, Other)
  Sender: FDA-Public Use
  Company Number: USA0508105532

PATIENT
  Age: 50 Year

DRUGS (1)
  1. SYMBYAX [Suspect]
     Dates: start: 20050620, end: 20050809

REACTIONS (1)
  - BLOOD GLUCOSE INCREASED [None]
